FAERS Safety Report 13776508 (Version 15)
Quarter: 2020Q1

REPORT INFORMATION
  Report Type: Spontaneous
  Country: US (occurrence: US)
  Receive Date: 20170720
  Receipt Date: 20200225
  Transmission Date: 20200409
  Serious: Yes (Death, Hospitalization, Other)
  Sender: FDA-Public Use
  Company Number: US-ACTELION-A-NJ2017-156853

PATIENT
  Age: 81 Year
  Sex: Male
  Weight: 67.57 kg

DRUGS (18)
  1. UPTRAVI [Suspect]
     Active Substance: SELEXIPAG
     Dosage: 800 MCG, BID
     Route: 048
  2. ADEMPAS [Concomitant]
     Active Substance: RIOCIGUAT
  3. INCRUSE ELLIPTA [Concomitant]
     Active Substance: UMECLIDINIUM BROMIDE
     Dosage: 62.5 MCG, QD
     Route: 055
  4. TAMSULOSIN [Concomitant]
     Active Substance: TAMSULOSIN
     Dosage: 0.4 MG, QD
     Route: 048
  5. UPTRAVI [Suspect]
     Active Substance: SELEXIPAG
     Indication: PULMONARY ARTERIAL HYPERTENSION
     Dosage: 600 MCG, BID
     Route: 048
  6. UPTRAVI [Suspect]
     Active Substance: SELEXIPAG
     Dosage: UNK
     Route: 048
  7. UPTRAVI [Suspect]
     Active Substance: SELEXIPAG
     Dosage: 400 MCG, BID
     Route: 048
  8. UPTRAVI [Suspect]
     Active Substance: SELEXIPAG
     Dosage: 200 MCG, BID
     Route: 048
  9. OXYGEN. [Concomitant]
     Active Substance: OXYGEN
  10. UPTRAVI [Suspect]
     Active Substance: SELEXIPAG
     Dosage: 200 MCG, BID
     Route: 048
     Dates: start: 20170522
  11. ATORVASTATIN [Concomitant]
     Active Substance: ATORVASTATIN
     Dosage: 40 MG, QD
     Route: 048
  12. CARVEDILOL. [Concomitant]
     Active Substance: CARVEDILOL
     Dosage: 3.125 MG, BID
     Route: 048
  13. FINASTERIDE. [Concomitant]
     Active Substance: FINASTERIDE
     Dosage: 5 MG, QD
     Route: 048
  14. FUROSEMIDE. [Concomitant]
     Active Substance: FUROSEMIDE
     Dosage: 40 MG, BID
     Route: 048
  15. UPTRAVI [Suspect]
     Active Substance: SELEXIPAG
     Dosage: 1000 MCG, BID
     Route: 048
  16. SILDENAFIL CITRATE. [Concomitant]
     Active Substance: SILDENAFIL CITRATE
  17. AMLODIPINE [Concomitant]
     Active Substance: AMLODIPINE BESYLATE
  18. PROTONIX [Concomitant]
     Active Substance: PANTOPRAZOLE SODIUM
     Dosage: 20 MG, BID
     Route: 048

REACTIONS (27)
  - Nausea [Not Recovered/Not Resolved]
  - Dialysis [Unknown]
  - Anaemia [Unknown]
  - Pneumonia [Unknown]
  - Scleroderma [Unknown]
  - Pneumothorax [Unknown]
  - Gastric ileus [Not Recovered/Not Resolved]
  - Vomiting [Not Recovered/Not Resolved]
  - Intestinal obstruction [Unknown]
  - Upper respiratory tract infection [Unknown]
  - Dyspnoea [Recovering/Resolving]
  - Hypotension [Unknown]
  - Thrombosis in device [Unknown]
  - Oedema peripheral [Unknown]
  - Incontinence [Unknown]
  - Loss of personal independence in daily activities [Unknown]
  - Malaise [Unknown]
  - Epistaxis [Unknown]
  - Respiratory tract infection [Unknown]
  - Mental status changes [Unknown]
  - Haemoglobin decreased [Unknown]
  - Death [Fatal]
  - Cardiogenic shock [Not Recovered/Not Resolved]
  - Dialysis related complication [Unknown]
  - Diarrhoea [Recovering/Resolving]
  - Thyroid mass [Unknown]
  - Rales [Unknown]

NARRATIVE: CASE EVENT DATE: 20200130
